FAERS Safety Report 9018348 (Version 1)
Quarter: 2013Q1

REPORT INFORMATION
  Report Type: Report from Study
  Country: CN (occurrence: CN)
  Receive Date: 20130117
  Receipt Date: 20130117
  Transmission Date: 20140127
  Serious: Yes (Hospitalization)
  Sender: FDA-Public Use
  Company Number: CN-ASTRAZENECA-2013SE02544

PATIENT
  Age: 19998 Day
  Sex: Male

DRUGS (16)
  1. AZD6140 [Suspect]
     Indication: CORONARY ARTERY DISEASE
     Route: 048
     Dates: start: 20120208, end: 20120501
  2. ASA [Concomitant]
     Route: 048
     Dates: end: 20120626
  3. ASA [Concomitant]
     Route: 048
     Dates: start: 20120709
  4. SPIRONOLACTONE [Concomitant]
     Indication: SYSTOLIC DYSFUNCTION
     Route: 048
     Dates: start: 20120621
  5. ISOSORBIDE MONONITRATE [Concomitant]
     Indication: SYSTOLIC DYSFUNCTION
     Route: 048
     Dates: start: 20120620, end: 20120703
  6. ISOSORBIDE MONONITRATE [Concomitant]
     Indication: CORONARY ARTERY DISEASE
     Route: 048
     Dates: start: 20120620, end: 20120703
  7. ISOSORBIDE MONONITRATE [Concomitant]
     Indication: SYSTOLIC DYSFUNCTION
     Route: 048
     Dates: start: 20120703
  8. ISOSORBIDE MONONITRATE [Concomitant]
     Indication: CORONARY ARTERY DISEASE
     Route: 048
     Dates: start: 20120703
  9. METOPROLOL [Concomitant]
     Indication: CORONARY ARTERY DISEASE
     Route: 048
  10. LANTUS [Concomitant]
     Indication: TYPE 2 DIABETES MELLITUS
     Route: 058
     Dates: start: 20120706
  11. INSULIN ASPART [Concomitant]
     Indication: TYPE 2 DIABETES MELLITUS
     Route: 058
     Dates: start: 20120706
  12. ROSUVASTATIN [Concomitant]
     Indication: CORONARY ARTERY DISEASE
     Route: 048
     Dates: start: 20120620
  13. FUROSEMIDE [Concomitant]
     Indication: SYSTOLIC DYSFUNCTION
     Route: 048
     Dates: start: 20120625
  14. PERINDOPRIL [Concomitant]
     Indication: CORONARY ARTERY DISEASE
     Route: 048
     Dates: start: 20120620
  15. PERINDOPRIL [Concomitant]
     Indication: HYPERTENSION
     Route: 048
     Dates: start: 20120620
  16. PERINDOPRIL [Concomitant]
     Indication: TYPE 2 DIABETES MELLITUS
     Route: 048
     Dates: start: 20120620

REACTIONS (1)
  - Cardiac failure [Not Recovered/Not Resolved]
